FAERS Safety Report 4761313-7 (Version None)
Quarter: 2005Q3

REPORT INFORMATION
  Report Type: 
  Country: None (occurrence: None)
  Receive Date: 20050901
  Receipt Date: 20050901
  Transmission Date: 20060218
  Serious: Yes (Disabling)
  Sender: FDA-Public Use
  Company Number: None

PATIENT
  Age: 30 Year
  Sex: Female
  Weight: 52.1637 kg

DRUGS (2)
  1. PAXIL [Suspect]
     Indication: DEPRESSION
     Dosage: 20MG     1
  2. CLONAZEPAM [Concomitant]

REACTIONS (9)
  - ACTIVITIES OF DAILY LIVING IMPAIRED [None]
  - ANXIETY [None]
  - EYE DISORDER [None]
  - FEELING ABNORMAL [None]
  - FEELING JITTERY [None]
  - IMPAIRED WORK ABILITY [None]
  - INSOMNIA [None]
  - NERVOUS SYSTEM DISORDER [None]
  - PALPITATIONS [None]
